FAERS Safety Report 4638428-7 (Version None)
Quarter: 2005Q2

REPORT INFORMATION
  Report Type: 
  Country: None (occurrence: None)
  Receive Date: 20050418
  Receipt Date: 20050324
  Transmission Date: 20051028
  Serious: Yes (Hospitalization)
  Sender: FDA-Public Use
  Company Number: US_0503114615

PATIENT
  Age: 60 Year
  Sex: Male
  Weight: 93 kg

DRUGS (6)
  1. PEMETREXED [Suspect]
     Indication: THYMOMA
     Dosage: 1075 MG
     Dates: start: 20050201
  2. ATENOLOL [Concomitant]
  3. MULTI-VITAMINS [Concomitant]
  4. DARVOCET-N 100 [Concomitant]
  5. AMOXICILLIN [Concomitant]
  6. DEXAMETHASONE [Concomitant]

REACTIONS (17)
  - BLOOD ALKALINE PHOSPHATASE INCREASED [None]
  - BLOOD BILIRUBIN INCREASED [None]
  - CHILLS [None]
  - DYSPHAGIA [None]
  - EROSIVE DUODENITIS [None]
  - GASTRITIS EROSIVE [None]
  - HAEMATOCRIT DECREASED [None]
  - INFECTION [None]
  - LUNG INFILTRATION [None]
  - MEDIASTINAL DISORDER [None]
  - OESOPHAGEAL ACHALASIA [None]
  - PNEUMONIA ASPIRATION [None]
  - PRODUCTIVE COUGH [None]
  - PYREXIA [None]
  - RESPIRATORY RATE INCREASED [None]
  - WEIGHT DECREASED [None]
  - WHITE BLOOD CELL COUNT DECREASED [None]
